FAERS Safety Report 20730277 (Version 3)
Quarter: 2022Q2

REPORT INFORMATION
  Report Type: Spontaneous
  Country: US (occurrence: US)
  Receive Date: 20220420
  Receipt Date: 20220624
  Transmission Date: 20220721
  Serious: Yes (Other)
  Sender: FDA-Public Use
  Company Number: US-PFIZER INC-202101299887

PATIENT
  Age: 56 Year
  Sex: Female

DRUGS (1)
  1. XELJANZ XR [Suspect]
     Active Substance: TOFACITINIB CITRATE
     Dosage: UNK
     Dates: start: 20210901, end: 2022

REACTIONS (6)
  - Systemic lupus erythematosus [Unknown]
  - Diarrhoea [Recovered/Resolved]
  - Headache [Recovered/Resolved]
  - COVID-19 [Unknown]
  - Fatigue [Unknown]
  - Therapeutic product effect incomplete [Unknown]

NARRATIVE: CASE EVENT DATE: 20210901
